FAERS Safety Report 11419805 (Version 1)
Quarter: 2015Q3

REPORT INFORMATION
  Report Type: Report from Study
  Country: FR (occurrence: FR)
  Receive Date: 20150826
  Receipt Date: 20150826
  Transmission Date: 20151125
  Serious: Yes (Hospitalization)
  Sender: FDA-Public Use
  Company Number: FR-UNITED THERAPEUTICS-REM_00249_2006

PATIENT
  Age: 35 Year
  Sex: Female
  Weight: 58 kg

DRUGS (3)
  1. BOSENTAN [Concomitant]
     Active Substance: BOSENTAN
     Indication: PULMONARY HYPERTENSION
  2. PREVISCAN                          /00261401/ [Concomitant]
     Active Substance: PENTOXIFYLLINE
     Indication: PULMONARY HYPERTENSION
  3. BLINDED TREPROSTINIL SODIUM (SQ/IV) [Suspect]
     Active Substance: TREPROSTINIL SODIUM
     Indication: PULMONARY ARTERIAL HYPERTENSION
     Dosage: 54 NG/KG/MIN
     Route: 042
     Dates: start: 20041216

REACTIONS (1)
  - Stenotrophomonas sepsis [Recovered/Resolved]

NARRATIVE: CASE EVENT DATE: 20051221
